FAERS Safety Report 8912509 (Version 4)
Quarter: 2013Q1

REPORT INFORMATION
  Report Type: Spontaneous
  Country: SE (occurrence: SE)
  Receive Date: 20121116
  Receipt Date: 20130121
  Transmission Date: 20140127
  Serious: Yes (Hospitalization, Other)
  Sender: FDA-Public Use
  Company Number: SE-AMGEN-SWESP2012071849

PATIENT
  Age: 58 Year
  Sex: Female
  Weight: 65 kg

DRUGS (1)
  1. VECTIBIX [Suspect]
     Indication: RECTAL CANCER
     Dosage: 390 MG, Q2WK
     Route: 042
     Dates: start: 20120604, end: 20121203

REACTIONS (12)
  - Disorientation [Unknown]
  - Intracranial pressure increased [Unknown]
  - Cerebral cyst [Unknown]
  - Ascites [Recovering/Resolving]
  - Disease progression [Unknown]
  - CSF test abnormal [Unknown]
  - Confusional state [Recovering/Resolving]
  - Muscle spasms [Recovering/Resolving]
  - Eyelash thickening [Unknown]
  - Carcinoembryonic antigen [Unknown]
  - Nervous system disorder [Unknown]
  - Acne [Unknown]
